FAERS Safety Report 7045725-7 (Version None)
Quarter: 2010Q4

REPORT INFORMATION
  Report Type: 
  Country: None (occurrence: None)
  Receive Date: 20101014
  Receipt Date: 20101008
  Transmission Date: 20110411
  Serious: Yes (Life-Threatening)
  Sender: FDA-Public Use
  Company Number: FR-MERCK-1010FRA00036

PATIENT
  Age: 62 Year
  Sex: Female

DRUGS (8)
  1. EMEND [Suspect]
     Route: 048
     Dates: start: 20100709, end: 20100709
  2. TAXOTERE [Suspect]
     Indication: BREAST CANCER
     Route: 051
     Dates: start: 20100709, end: 20100709
  3. SOLUPRED [Suspect]
     Route: 048
     Dates: start: 20100709, end: 20100709
  4. FOZITEC [Concomitant]
     Route: 065
  5. FUROSEMIDE [Concomitant]
     Route: 065
  6. SERESTA [Concomitant]
     Route: 065
  7. PROPRANOLOL HYDROCHLORIDE [Concomitant]
     Route: 065
  8. BETASERC [Concomitant]
     Route: 065

REACTIONS (1)
  - TOXIC EPIDERMAL NECROLYSIS [None]
